FAERS Safety Report 6410676-5 (Version None)
Quarter: 2009Q4

REPORT INFORMATION
  Report Type: 
  Country: None (occurrence: None)
  Receive Date: 20091016
  Receipt Date: 20091008
  Transmission Date: 20100525
  Serious: Yes (Life-Threatening, Other)
  Sender: FDA-Public Use
  Company Number: 371333

PATIENT
  Sex: Female

DRUGS (1)
  1. CEPACOL DUAL RELIEF SORE THROAT SPRAY - MINT [Suspect]
     Indication: OROPHARYNGEAL PAIN
     Dosage: MORE THAN RECOMMENDED
     Route: 061
     Dates: start: 20090907

REACTIONS (10)
  - ARTERIAL DISORDER [None]
  - AUTOIMMUNE DISORDER [None]
  - DRUG HYPERSENSITIVITY [None]
  - DYSPNOEA [None]
  - EYELID DISORDER [None]
  - HEADACHE [None]
  - OEDEMA PERIPHERAL [None]
  - PHARYNGEAL OEDEMA [None]
  - URTICARIA [None]
  - VISUAL IMPAIRMENT [None]
